FAERS Safety Report 7289297-0 (Version None)
Quarter: 2011Q1

REPORT INFORMATION
  Report Type: 
  Country: None (occurrence: None)
  Receive Date: 20110211
  Receipt Date: 20110131
  Transmission Date: 20110831
  Serious: Yes (Death)
  Sender: FDA-Public Use
  Company Number: FR-ELI_LILLY_AND_COMPANY-FR201102000168

PATIENT
  Age: 50 Year
  Sex: Male

DRUGS (2)
  1. CALCIPARINE [Concomitant]
     Indication: INFECTION
  2. XIGRIS [Suspect]
     Indication: SEPTIC SHOCK

REACTIONS (2)
  - GASTRIC ULCER [None]
  - HAEMOLYSIS [None]
